FAERS Safety Report 13590250 (Version 1)
Quarter: 2017Q2

REPORT INFORMATION
  Report Type: Spontaneous
  Country: US (occurrence: US)
  Receive Date: 20170529
  Receipt Date: 20170529
  Transmission Date: 20170830
  Serious: No
  Sender: FDA-Public Use
  Company Number: None

PATIENT
  Age: 72 Year
  Sex: Male
  Weight: 80.1 kg

DRUGS (13)
  1. FLECAINIDE [Suspect]
     Active Substance: FLECAINIDE
     Indication: VENTRICULAR TACHYCARDIA
     Dosage: ?          QUANTITY:180 TABLET(S);?
     Route: 048
  2. ALFUZOSIN [Concomitant]
     Active Substance: ALFUZOSIN
  3. METAMUCIL [Concomitant]
     Active Substance: PLANTAGO SEED
  4. METOPROLOL. [Concomitant]
     Active Substance: METOPROLOL
  5. DUTASTERIDE. [Concomitant]
     Active Substance: DUTASTERIDE
  6. TUMS [Concomitant]
     Active Substance: CALCIUM CARBONATE
  7. OMEPRAZOLE. [Concomitant]
     Active Substance: OMEPRAZOLE
  8. ACETAMINOPHEN. [Concomitant]
     Active Substance: ACETAMINOPHEN
  9. LISINOPRIL. [Concomitant]
     Active Substance: LISINOPRIL
  10. PEPCID [Concomitant]
     Active Substance: FAMOTIDINE
  11. CHLORTHALIDONE. [Concomitant]
     Active Substance: CHLORTHALIDONE
  12. AICD (MEDTRONIC) [Concomitant]
  13. AMLODIPINE [Concomitant]
     Active Substance: AMLODIPINE BESYLATE

REACTIONS (1)
  - Male orgasmic disorder [None]

NARRATIVE: CASE EVENT DATE: 20160529
